FAERS Safety Report 6719618-6 (Version None)
Quarter: 2010Q2

REPORT INFORMATION
  Report Type: 
  Country: None (occurrence: None)
  Receive Date: 20100511
  Receipt Date: 20100504
  Transmission Date: 20101027
  Serious: Yes (Death)
  Sender: FDA-Public Use
  Company Number: US-GILEAD-2010-0028334

PATIENT
  Sex: Male
  Weight: 90.346 kg

DRUGS (9)
  1. LETAIRIS [Suspect]
     Indication: PULMONARY ARTERIAL HYPERTENSION
     Route: 048
     Dates: start: 20100225, end: 20100309
  2. ADCIRCA [Concomitant]
  3. WARFARIN SODIUM [Concomitant]
  4. FUROSEMIDE [Concomitant]
  5. ACTIMMUNE [Concomitant]
  6. ALENDRONATE [Concomitant]
  7. POTASSIUM CHLORIDE [Concomitant]
  8. CA [Concomitant]
  9. M.V.I. [Concomitant]

REACTIONS (1)
  - DISEASE PROGRESSION [None]
